FAERS Safety Report 9236850 (Version 2)
Quarter: 2013Q2

REPORT INFORMATION
  Report Type: Spontaneous
  Country: BE (occurrence: BE)
  Receive Date: 20130417
  Receipt Date: 20130422
  Transmission Date: 20140414
  Serious: Yes (Other)
  Sender: FDA-Public Use
  Company Number: BE-ROCHE-1214903

PATIENT
  Age: 71 Year
  Sex: Female

DRUGS (1)
  1. LUCENTIS [Suspect]
     Indication: AGE-RELATED MACULAR DEGENERATION
     Route: 050
     Dates: start: 20120809

REACTIONS (3)
  - Endophthalmitis [Recovered/Resolved]
  - Visual impairment [Recovered/Resolved]
  - Abnormal sensation in eye [Recovering/Resolving]
